FAERS Safety Report 6511168-5 (Version None)
Quarter: 2009Q4

REPORT INFORMATION
  Report Type: 
  Country: None (occurrence: None)
  Receive Date: 20091222
  Receipt Date: 20091215
  Transmission Date: 20100525
  Serious: Yes (Other)
  Sender: FDA-Public Use
  Company Number: US-PURDUE-USA-2009-0041474

PATIENT
  Sex: Female

DRUGS (7)
  1. OXYCONTIN [Suspect]
     Indication: BACK PAIN
     Dosage: 120 MG, TID
     Route: 048
     Dates: start: 20090701, end: 20091101
  2. OXYCONTIN [Suspect]
     Dosage: 160 MG, TID
     Route: 048
     Dates: start: 20091101
  3. TRAMADOL HCL [Concomitant]
     Indication: PAIN
     Dosage: 100 MG, Q4H
     Route: 048
  4. PERCOCET [Concomitant]
     Indication: PAIN
     Dosage: 2 TABLET, Q4H
     Route: 048
  5. OXYCODONE HYDROCHLORIDE [Concomitant]
     Indication: PAIN
     Dosage: 30 MG, Q4H
     Route: 048
  6. GABAPENTIN [Concomitant]
     Indication: PAIN
     Dosage: 1200 MG, Q4H
     Route: 048
  7. ALPRAZOLAM [Concomitant]
     Indication: ANXIETY
     Dosage: 2 MG, Q3- 4H
     Route: 048

REACTIONS (3)
  - DENTAL CARIES [None]
  - TOOTH DISCOLOURATION [None]
  - TOOTHACHE [None]
